FAERS Safety Report 18508254 (Version 1)
Quarter: 2020Q4

REPORT INFORMATION
  Report Type: Spontaneous
  Country: US (occurrence: US)
  Receive Date: 20201116
  Receipt Date: 20201116
  Transmission Date: 20210114
  Serious: Yes (Hospitalization)
  Sender: FDA-Public Use
  Company Number: US-ACELLA PHARMACEUTICALS, LLC-2095959

PATIENT
  Age: 1 Day

DRUGS (10)
  1. AMPHETAMINES [Suspect]
     Active Substance: AMPHETAMINE
  2. PRENATAL VITAMINS [Concomitant]
     Active Substance: VITAMINS
  3. GABAPENTIN. [Suspect]
     Active Substance: GABAPENTIN
  4. COCAINE [Suspect]
     Active Substance: COCAINE
  5. FENTANYL. [Suspect]
     Active Substance: FENTANYL
  6. BUPRENORPHINE. [Suspect]
     Active Substance: BUPRENORPHINE
  7. PROMETHAZINE [Concomitant]
     Active Substance: PROMETHAZINE HYDROCHLORIDE
  8. METHAMPHETAMINES [Suspect]
     Active Substance: AMPHETAMINE
  9. NALOXONE [Suspect]
     Active Substance: NALOXONE
  10. MORPHINE [Suspect]
     Active Substance: MORPHINE

REACTIONS (1)
  - Drug withdrawal syndrome [None]
